FAERS Safety Report 5735957-X (Version None)
Quarter: 2008Q2

REPORT INFORMATION
  Report Type: 
  Country: None (occurrence: None)
  Receive Date: 20080509
  Receipt Date: 20080430
  Transmission Date: 20081010
  Serious: Yes (Other)
  Sender: FDA-Public Use
  Company Number: 2008009402

PATIENT
  Age: 14 Month
  Sex: Male
  Weight: 11.8 kg

DRUGS (1)
  1. ZYRTEC ALLERGY [Suspect]
     Indication: HYPERSENSITIVITY
     Dosage: 3ML ONCE, ORAL
     Route: 048
     Dates: start: 20080114, end: 20080411

REACTIONS (4)
  - EYE SWELLING [None]
  - PHOTOSENSITIVITY REACTION [None]
  - PRURITUS [None]
  - SUNBURN [None]
